FAERS Safety Report 24841969 (Version 1)
Quarter: 2025Q1

REPORT INFORMATION
  Report Type: Spontaneous
  Country: US (occurrence: US)
  Receive Date: 20250114
  Receipt Date: 20250114
  Transmission Date: 20250408
  Serious: No
  Sender: NOVARTIS
  Company Number: US-002147023-NVSC2025US005353

PATIENT
  Sex: Female
  Weight: 91 kg

DRUGS (2)
  1. SCEMBLIX [Suspect]
     Active Substance: ASCIMINIB HYDROCHLORIDE
     Indication: Chronic myeloid leukaemia
     Dosage: 80 MG, QD
     Route: 048
  2. SCEMBLIX [Suspect]
     Active Substance: ASCIMINIB HYDROCHLORIDE
     Indication: Philadelphia chromosome positive

REACTIONS (5)
  - Arthralgia [Recovering/Resolving]
  - Myalgia [Recovering/Resolving]
  - Fatigue [Recovering/Resolving]
  - Nausea [Recovering/Resolving]
  - Illness [Recovering/Resolving]
